FAERS Safety Report 7489185-0 (Version None)
Quarter: 2011Q2

REPORT INFORMATION
  Report Type: 
  Country: None (occurrence: None)
  Receive Date: 20110518
  Receipt Date: 20110510
  Transmission Date: 20111010
  Serious: Yes (Death, Hospitalization, Disabling)
  Sender: FDA-Public Use
  Company Number: AU-CELGENEUS-008-50794-11012422

PATIENT
  Sex: Male

DRUGS (4)
  1. VIDAZA [Suspect]
     Dosage: 60 MILLIGRAM/SQ. METER
     Route: 050
     Dates: start: 20100607, end: 20101224
  2. ASPIRIN [Concomitant]
     Indication: AMAUROSIS FUGAX
     Route: 065
  3. VIDAZA [Suspect]
     Dosage: 60 MILLIGRAM/SQ. METER
     Route: 050
     Dates: start: 20101220
  4. CALCIUM CARBONATE [Concomitant]
     Indication: OSTEOPOROSIS
     Route: 065

REACTIONS (3)
  - ACUTE MYELOID LEUKAEMIA RECURRENT [None]
  - ACUTE MYELOID LEUKAEMIA [None]
  - GRAND MAL CONVULSION [None]
